FAERS Safety Report 7745747-4 (Version None)
Quarter: 2011Q3

REPORT INFORMATION
  Report Type: 
  Country: None (occurrence: None)
  Receive Date: 20110913
  Receipt Date: 20110906
  Transmission Date: 20111222
  Serious: Yes (Hospitalization)
  Sender: FDA-Public Use
  Company Number: FR-SP-2011-08319

PATIENT
  Sex: Male
  Weight: 78 kg

DRUGS (1)
  1. IMMUCYST [Suspect]
     Indication: BLADDER CANCER
     Route: 043
     Dates: start: 20110803, end: 20110803

REACTIONS (10)
  - ASTHENIA [None]
  - CHILLS [None]
  - HAEMATURIA [None]
  - THIRST [None]
  - SPLENOMEGALY [None]
  - BOVINE TUBERCULOSIS [None]
  - WEIGHT DECREASED [None]
  - VOMITING [None]
  - PYREXIA [None]
  - CHOLESTATIC LIVER INJURY [None]
